FAERS Safety Report 23596528 (Version 1)
Quarter: 2024Q1

REPORT INFORMATION
  Report Type: Spontaneous
  Country: US (occurrence: US)
  Receive Date: 20240305
  Receipt Date: 20240305
  Transmission Date: 20240409
  Serious: Yes (Hospitalization, Other)
  Sender: FDA-Public Use
  Company Number: US-BRISTOL-MYERS SQUIBB COMPANY-2024-031872

PATIENT
  Age: 70 Year
  Sex: Female

DRUGS (1)
  1. REVLIMID [Suspect]
     Active Substance: LENALIDOMIDE
     Indication: Product used for unknown indication
     Dosage: QD FOR 21 DAYS ON AND 7 DAYS OFF
     Route: 048
     Dates: start: 20240131, end: 20240221

REACTIONS (7)
  - Hyponatraemia [Unknown]
  - Hepatic enzyme increased [Unknown]
  - Headache [Unknown]
  - Constipation [Unknown]
  - Insomnia [Unknown]
  - Neuropathy peripheral [Unknown]
  - Tremor [Unknown]
